FAERS Safety Report 6051769-4 (Version None)
Quarter: 2009Q1

REPORT INFORMATION
  Report Type: 
  Country: None (occurrence: None)
  Receive Date: 20090121
  Receipt Date: 20090121
  Transmission Date: 20090719
  Serious: No
  Sender: FDA-Public Use
  Company Number: None

PATIENT
  Age: 59 Year
  Sex: Male

DRUGS (1)
  1. TAXOTERE [Suspect]
     Dates: start: 20080915, end: 20080915

REACTIONS (4)
  - ERYTHEMA [None]
  - INFUSION RELATED REACTION [None]
  - PALPITATIONS [None]
  - SKIN REACTION [None]
